FAERS Safety Report 5612103-4 (Version None)
Quarter: 2008Q1

REPORT INFORMATION
  Report Type: 
  Country: None (occurrence: None)
  Receive Date: 20080204
  Receipt Date: 20080121
  Transmission Date: 20080703
  Serious: Yes (Other)
  Sender: FDA-Public Use
  Company Number: PHNU2008DE00638

PATIENT
  Age: 11 Year
  Sex: Female

DRUGS (2)
  1. RITALIN [Suspect]
     Dosage: 30 MG/DAY
     Route: 048
     Dates: start: 20080103
  2. MEDIKINET [Concomitant]
     Dosage: UNKNOWN
     Route: 048
     Dates: end: 20080102

REACTIONS (1)
  - HYPOTHYROIDISM [None]
